FAERS Safety Report 21126005 (Version 1)
Quarter: 2022Q3

REPORT INFORMATION
  Report Type: Spontaneous
  Country: US (occurrence: US)
  Receive Date: 20220725
  Receipt Date: 20220725
  Transmission Date: 20221026
  Serious: No
  Sender: FDA-Public Use
  Company Number: US-CELGENE-USA-20220101179

PATIENT
  Age: 87 Year
  Sex: Male

DRUGS (3)
  1. POMALYST [Suspect]
     Active Substance: POMALIDOMIDE
     Indication: Insomnia
     Dosage: 2 MILLIGRAM
     Route: 048
     Dates: start: 20211108
  2. POMALYST [Suspect]
     Active Substance: POMALIDOMIDE
     Route: 048
     Dates: start: 202112
  3. POMALYST [Suspect]
     Active Substance: POMALIDOMIDE
     Dosage: TAKE I CAPSULE BY MOUTH EVERY OTHER DAY ON DAYS 1-21 OF EACH 28 DAY CYCLE
     Route: 048
     Dates: start: 20210811

REACTIONS (5)
  - Fatigue [Unknown]
  - Pyrexia [Unknown]
  - Cough [Unknown]
  - White blood cell count decreased [Unknown]
  - Intentional product use issue [Unknown]
